FAERS Safety Report 7269442-3 (Version None)
Quarter: 2011Q1

REPORT INFORMATION
  Report Type: 
  Country: None (occurrence: None)
  Receive Date: 20110124
  Receipt Date: 20101231
  Transmission Date: 20110831
  Serious: Yes (Death)
  Sender: FDA-Public Use
  Company Number: AUR-APL-2011-00162

PATIENT
  Age: 43 Year
  Sex: Female

DRUGS (4)
  1. QUETIAPINE [Suspect]
     Dosage: ORAL
     Route: 048
  2. IBUPROFEN [Suspect]
     Dosage: ORAL
     Route: 048
  3. METFORMIN [Suspect]
     Dosage: ORAL
     Route: 048
  4. CLONAZEPAM [Suspect]
     Dosage: ORAL
     Route: 048

REACTIONS (1)
  - TOXICITY TO VARIOUS AGENTS [None]
